FAERS Safety Report 8359296-6 (Version None)
Quarter: 2012Q2

REPORT INFORMATION
  Report Type: 
  Country: None (occurrence: None)
  Receive Date: 20120515
  Receipt Date: 20120507
  Transmission Date: 20120825
  Serious: Yes (Hospitalization, Other)
  Sender: FDA-Public Use
  Company Number: US-BAYER-200942468NA

PATIENT
  Age: 26 Year
  Sex: Female
  Weight: 61.224 kg

DRUGS (7)
  1. YAZ [Suspect]
     Indication: ORAL CONTRACEPTION
     Dosage: 1 DF (DAILY DOSE), QD, ORAL
     Route: 048
     Dates: start: 20070901, end: 20071218
  2. RELAFEN [Concomitant]
     Dosage: UNK
     Dates: start: 20071215
  3. YAZ [Suspect]
     Indication: ACNE
  4. NABUMETONE [Concomitant]
  5. YAZ [Suspect]
     Indication: PREMENSTRUAL SYNDROME
  6. VICODIN [Concomitant]
  7. OXYCODONE HCL [Concomitant]
     Dosage: 5-325MG
     Dates: start: 20071102

REACTIONS (15)
  - CONVULSION [None]
  - HEADACHE [None]
  - PULMONARY EMBOLISM [None]
  - APHASIA [None]
  - CEREBROVASCULAR ACCIDENT [None]
  - CHEST DISCOMFORT [None]
  - GRAND MAL CONVULSION [None]
  - AMNESIA [None]
  - GAIT DISTURBANCE [None]
  - THROMBOSIS [None]
  - VIITH NERVE PARALYSIS [None]
  - DEEP VEIN THROMBOSIS [None]
  - SUPERIOR SAGITTAL SINUS THROMBOSIS [None]
  - COGNITIVE DISORDER [None]
  - MENTAL DISORDER [None]
